FAERS Safety Report 5810088-9 (Version None)
Quarter: 2008Q3

REPORT INFORMATION
  Report Type: 
  Country: None (occurrence: None)
  Receive Date: 20080715
  Receipt Date: 20080714
  Transmission Date: 20090109
  Serious: Yes (Life-Threatening)
  Sender: FDA-Public Use
  Company Number: D0057920A

PATIENT
  Age: 88 Year
  Sex: Female

DRUGS (5)
  1. ARIXTRA [Suspect]
     Indication: PROPHYLAXIS
     Dosage: 2.5ML UNKNOWN
     Route: 058
     Dates: start: 20080627, end: 20080630
  2. VERAPAMIL [Concomitant]
     Indication: ARRHYTHMIA
     Dosage: 120MG TWICE PER DAY
     Route: 048
  3. ATACAND [Concomitant]
     Indication: HYPERTENSION
     Dosage: 32MG PER DAY
     Route: 048
  4. CARBIMAZOL [Concomitant]
     Indication: HYPERTHYROIDISM
     Dosage: 5MG PER DAY
     Route: 048
  5. DUSODRIL [Concomitant]
     Dosage: 1TAB TWICE PER DAY
     Route: 048

REACTIONS (1)
  - HYPERTENSION [None]
